FAERS Safety Report 5072953-2 (Version None)
Quarter: 2006Q3

REPORT INFORMATION
  Report Type: 
  Country: None (occurrence: None)
  Receive Date: 20060802
  Receipt Date: 20060330
  Transmission Date: 20061208
  Serious: Yes (Hospitalization)
  Sender: FDA-Public Use
  Company Number: 222043

PATIENT
  Sex: Female

DRUGS (10)
  1. HERCEPTIN [Suspect]
     Indication: BREAST CANCER METASTATIC
     Dosage: SEE IMAGE
     Route: 042
     Dates: start: 20051213
  2. HERCEPTIN [Suspect]
     Indication: BREAST CANCER METASTATIC
     Dosage: SEE IMAGE
     Route: 042
     Dates: start: 20060103
  3. CYCLOPHOSPHAMIDE [Suspect]
     Indication: BREAST CANCER METASTATIC
     Dosage: 150 MG, INTRAVENOUS
     Route: 042
     Dates: start: 20051213
  4. METHOTREXATE [Suspect]
     Indication: BREAST CANCER METASTATIC
     Dosage: 65 MG, INTRAVENOUS
     Route: 042
     Dates: start: 20051213
  5. FLUOROURACIL [Suspect]
     Indication: BREAST CANCER METASTATIC
     Dosage: 950 MG, INTRAVENOUS
     Route: 042
     Dates: start: 20051213
  6. DEXAMETHASONE TAB [Concomitant]
  7. DIAZEPAM [Concomitant]
  8. MOVICOLON                    (ELECTROLYTES NOS, POLYETHYLENE GLYCOL) [Concomitant]
  9. TRAMADOL HCL [Concomitant]
  10. CETIRIZINE HCL [Concomitant]

REACTIONS (3)
  - FEBRILE NEUTROPENIA [None]
  - LEUKOPENIA [None]
  - LUNG INFILTRATION [None]
